FAERS Safety Report 13686161 (Version 1)
Quarter: 2017Q2

REPORT INFORMATION
  Report Type: Spontaneous
  Country: US (occurrence: US)
  Receive Date: 20170623
  Receipt Date: 20170623
  Transmission Date: 20170830
  Serious: No
  Sender: FDA-Public Use
  Company Number: US-ROCHE-1055093

PATIENT
  Sex: Male

DRUGS (13)
  1. GLYCERIN. [Concomitant]
     Active Substance: GLYCERIN
  2. COLESTIPOL [Suspect]
     Active Substance: COLESTIPOL
     Indication: PRODUCT USED FOR UNKNOWN INDICATION
  3. SERTRALINE [Concomitant]
     Active Substance: SERTRALINE HYDROCHLORIDE
  4. CELLCEPT [Suspect]
     Active Substance: MYCOPHENOLATE MOFETIL\MYCOPHENOLATE MOFETIL HYDROCHLORIDE
     Indication: POLYMYOSITIS
     Route: 048
  5. XANAX [Concomitant]
     Active Substance: ALPRAZOLAM
  6. TRAZODONE [Concomitant]
     Active Substance: TRAZODONE HYDROCHLORIDE
  7. NAPROXEN. [Concomitant]
     Active Substance: NAPROXEN
  8. OXYBUTYNIN [Concomitant]
     Active Substance: OXYBUTYNIN
  9. AMLODIPINE [Concomitant]
     Active Substance: AMLODIPINE BESYLATE
  10. LORATADINE. [Concomitant]
     Active Substance: LORATADINE
  11. OMEPRAZOLE. [Concomitant]
     Active Substance: OMEPRAZOLE
  12. NITROSTAT [Concomitant]
     Active Substance: NITROGLYCERIN
  13. HYDROCODONE [Concomitant]
     Active Substance: HYDROCODONE

REACTIONS (2)
  - Peripheral swelling [Unknown]
  - Arthralgia [Unknown]
